FAERS Safety Report 4780259-1 (Version None)
Quarter: 2005Q3

REPORT INFORMATION
  Report Type: 
  Country: None (occurrence: None)
  Receive Date: 20050914
  Receipt Date: 20040730
  Transmission Date: 20060218
  Serious: Yes (Hospitalization)
  Sender: FDA-Public Use
  Company Number: 163-20785-04080034

PATIENT
  Age: 39 Year
  Sex: Male
  Weight: 123 kg

DRUGS (3)
  1. THALOMID [Suspect]
     Indication: MULTIPLE MYELOMA
     Dosage: 200 MG, DAILY FOR 28 DAYS FOR 4 CYCLES, ORAL
     Route: 048
     Dates: start: 20020909, end: 20040628
  2. DEXAMETHASONE [Suspect]
     Indication: MULTIPLE MYELOMA
     Dosage: 40 MG, DAILY FOR 1-4, 9-12, 17-20 Q 28 DAYS, ORAL
     Route: 048
     Dates: start: 20020909, end: 20030420
  3. PAMIDRONATE DISODIUM [Suspect]
     Indication: MULTIPLE MYELOMA
     Dosage: 90 MG, OVER 2-4 HRS ON DAY 1 AND WKS 4,8,12,16, INTRAVENOUS
     Route: 042
     Dates: start: 20020909, end: 20040611

REACTIONS (1)
  - PULMONARY EMBOLISM [None]
